FAERS Safety Report 8509696-6 (Version None)
Quarter: 2012Q3

REPORT INFORMATION
  Report Type: 
  Country: None (occurrence: None)
  Receive Date: 20120703
  Receipt Date: 20120618
  Transmission Date: 20120928
  Serious: Yes (Hospitalization)
  Sender: FDA-Public Use
  Company Number: 20120398

PATIENT
  Age: 47 Year
  Sex: Female

DRUGS (3)
  1. CALCIUM ACETATE [Suspect]
     Indication: PRODUCT USED FOR UNKNOWN INDICATION
  2. VALPROIC ACID [Suspect]
     Indication: PRODUCT USED FOR UNKNOWN INDICATION
     Dosage: 500 MG. TWICE DAILY
  3. LEVOCARNITINE [Suspect]
     Indication: LIVER DISORDER
     Dosage: 990 MG. TWICE DAILY

REACTIONS (4)
  - ASTHENIA [None]
  - TOXICITY TO VARIOUS AGENTS [None]
  - ENCEPHALOPATHY [None]
  - HYPOPHOSPHATAEMIA [None]
